FAERS Safety Report 7911468-8 (Version None)
Quarter: 2011Q4

REPORT INFORMATION
  Report Type: 
  Country: None (occurrence: None)
  Receive Date: 20111114
  Receipt Date: 20111110
  Transmission Date: 20120403
  Serious: Yes (Other)
  Sender: FDA-Public Use
  Company Number: IN-BAYER-2011-108665

PATIENT
  Age: 40 Year
  Sex: Male

DRUGS (2)
  1. IBUPROFEN [Suspect]
     Indication: ANTIINFLAMMATORY THERAPY
     Dosage: 400 MG, QID
     Route: 048
  2. DICLOFENAC SODIUM [Suspect]
     Indication: ANTIINFLAMMATORY THERAPY
     Dosage: 50 MG, QID
     Route: 048

REACTIONS (3)
  - DUODENAL OBSTRUCTION [None]
  - VOMITING [None]
  - PYLORIC STENOSIS [None]
